FAERS Safety Report 5413863-8 (Version None)
Quarter: 2007Q3

REPORT INFORMATION
  Report Type: 
  Country: None (occurrence: None)
  Receive Date: 20070814
  Receipt Date: 20070601
  Transmission Date: 20080115
  Serious: No
  Sender: FDA-Public Use
  Company Number: US-BRISTOL-MYERS SQUIBB COMPANY-13801030

PATIENT

DRUGS (4)
  1. REYATAZ [Suspect]
  2. VIDEX [Concomitant]
  3. NORVIR [Concomitant]
  4. VIREAD [Concomitant]

REACTIONS (2)
  - CRYSTAL URINE PRESENT [None]
  - NEPHROLITHIASIS [None]
